FAERS Safety Report 17670702 (Version 3)
Quarter: 2020Q2

REPORT INFORMATION
  Report Type: Report from Study
  Country: US (occurrence: US)
  Receive Date: 20200415
  Receipt Date: 20200521
  Transmission Date: 20200713
  Serious: No
  Sender: FDA-Public Use
  Company Number: US-SA-2020SA091968

PATIENT
  Age: 64 Year
  Sex: Female

DRUGS (3)
  1. DUPILUMAB [Suspect]
     Active Substance: DUPILUMAB
     Indication: ASTHMA
     Dosage: 600 MG, 1X
     Route: 058
     Dates: start: 20200322, end: 20200322
  2. DUPILUMAB [Suspect]
     Active Substance: DUPILUMAB
     Dosage: 300 MG, 1X
     Route: 058
     Dates: start: 20200414, end: 20200414
  3. DUPILUMAB [Suspect]
     Active Substance: DUPILUMAB
     Dosage: 200 MG, OTHER
     Route: 058
     Dates: start: 2020

REACTIONS (3)
  - Injection site rash [Not Recovered/Not Resolved]
  - Off label use [Unknown]
  - Product dose omission [Unknown]

NARRATIVE: CASE EVENT DATE: 202004
